FAERS Safety Report 6994137-0 (Version None)
Quarter: 2010Q3

REPORT INFORMATION
  Report Type: 
  Country: None (occurrence: None)
  Receive Date: 20100917
  Receipt Date: 20070614
  Transmission Date: 20110219
  Serious: Yes (Other)
  Sender: FDA-Public Use
  Company Number: US-ASTRAZENECA-2006UW21888

PATIENT
  Sex: Female
  Weight: 40.8 kg

DRUGS (15)
  1. SEROQUEL [Suspect]
     Indication: SLEEP DISORDER
     Route: 048
     Dates: start: 19990101, end: 20030101
  2. SEROQUEL [Suspect]
     Route: 048
     Dates: start: 20010907
  3. CLARITIN-D [Concomitant]
  4. ESTRADIOL [Concomitant]
     Dosage: STRENGTH-1MG, 2MG
  5. PREMARIN [Concomitant]
  6. MAXAIR [Concomitant]
  7. TRIMOX [Concomitant]
  8. REMERON SOLTAB [Concomitant]
  9. FOSAMAX [Concomitant]
  10. GUAIFEN PSE [Concomitant]
     Dosage: STRENGTH-600MG/120MG
  11. ZOLOFT [Concomitant]
  12. CLONAZEPAM [Concomitant]
  13. PREVACID [Concomitant]
  14. PROMETHAZINE W/ CODEINE [Concomitant]
  15. NEURONTIN [Concomitant]
     Dosage: STRENGTH 100MG, 300MG. DOSE 400MG-600MG

REACTIONS (1)
  - PANCREATITIS [None]
